FAERS Safety Report 15673650 (Version 1)
Quarter: 2018Q4

REPORT INFORMATION
  Report Type: Spontaneous
  Country: US (occurrence: US)
  Receive Date: 20181129
  Receipt Date: 20181129
  Transmission Date: 20190205
  Serious: No
  Sender: FDA-Public Use
  Company Number: US-METUCHEN-2018-MET-TST04

PATIENT
  Sex: Male

DRUGS (1)
  1. STENDRA [Suspect]
     Active Substance: AVANAFIL
     Indication: PRODUCT USED FOR UNKNOWN INDICATION
     Route: 048
     Dates: start: 20160607, end: 20160607

REACTIONS (2)
  - Intentional product misuse [Recovered/Resolved]
  - Erection increased [Not Recovered/Not Resolved]

NARRATIVE: CASE EVENT DATE: 20160607
